FAERS Safety Report 9528890 (Version 1)
Quarter: 2013Q3

REPORT INFORMATION
  Report Type: Spontaneous
  Country: US (occurrence: US)
  Receive Date: 20130917
  Receipt Date: 20130917
  Transmission Date: 20140515
  Serious: No
  Sender: FDA-Public Use
  Company Number: US-BANPHARM-20130677

PATIENT
  Age: 87 Year
  Sex: Male
  Weight: 63.5 kg

DRUGS (5)
  1. ZYRTEC LIQUID GELS 10 MG [Suspect]
     Indication: HYPERSENSITIVITY
     Dosage: 1 DF, QD,
     Route: 048
     Dates: start: 20130131, end: 20130203
  2. ZOCOR [Concomitant]
     Indication: BLOOD CHOLESTEROL
     Dosage: 1 DF, QD,
  3. HYZAAR [Concomitant]
     Indication: BLOOD PRESSURE
     Dosage: 1 DF, QD,
  4. CALCIUM [Concomitant]
     Indication: CALCIUM DEFICIENCY
     Dosage: 1 DF, QD,
  5. IRON [Concomitant]
     Indication: IRON DEFICIENCY
     Dosage: 1 DF, QD,

REACTIONS (1)
  - Drug ineffective [Not Recovered/Not Resolved]
